FAERS Safety Report 10416397 (Version 1)
Quarter: 2014Q3

REPORT INFORMATION
  Report Type: Spontaneous
  Country: US (occurrence: None)
  Receive Date: 20140827
  Receipt Date: 20140827
  Transmission Date: 20150326
  Serious: No
  Sender: FDA-Public Use
  Company Number: None

PATIENT
  Age: 41 Year
  Sex: Female
  Weight: 63.5 kg

DRUGS (2)
  1. TYLENOL-CODEINE NO. 3 [Suspect]
     Active Substance: ACETAMINOPHEN\CODEINE PHOSPHATE
  2. TYLENOL-CODEINE NO. 3 [Suspect]
     Active Substance: ACETAMINOPHEN\CODEINE PHOSPHATE
     Indication: OVARIAN CYST

REACTIONS (2)
  - Pain [None]
  - Gallbladder disorder [None]

NARRATIVE: CASE EVENT DATE: 20140825
